FAERS Safety Report 6420357-X (Version None)
Quarter: 2009Q4

REPORT INFORMATION
  Report Type: 
  Country: None (occurrence: None)
  Receive Date: 20091029
  Receipt Date: 20091020
  Transmission Date: 20100525
  Serious: No
  Sender: FDA-Public Use
  Company Number: US-B.I. PHARMACEUTICALS,INC./RIDGEFIELD-2009-BP-11255BP

PATIENT
  Age: 58 Year
  Sex: Female

DRUGS (15)
  1. SPIRIVA [Suspect]
     Indication: CHRONIC OBSTRUCTIVE PULMONARY DISEASE
     Dosage: 18 MCG
     Route: 055
     Dates: start: 20040101
  2. SPIRIVA [Suspect]
     Indication: LUNG DISORDER
  3. METOPROLOL [Concomitant]
     Indication: HYPERTENSION
     Dosage: 100 MG
     Route: 048
     Dates: start: 20080101
  4. ADVAIR DISKUS 100/50 [Concomitant]
     Dosage: 2 PUF
  5. ALBUTEROL SULFATE AUTOHALER [Concomitant]
  6. ALBUTEROL [Concomitant]
  7. SIMVASTATIN [Concomitant]
  8. OXYGEN [Concomitant]
  9. ALPRAZOLAM [Concomitant]
  10. TRAMADOL HCL [Concomitant]
  11. PRILOSEC [Concomitant]
  12. CITALOPRAM [Concomitant]
  13. B-COMPLEX PLUS VITAMIN C [Concomitant]
  14. CALCIUM 600 PLUS D [Concomitant]
  15. MULTIVITAMIN/MULTIMINERALS [Concomitant]

REACTIONS (1)
  - CONDITION AGGRAVATED [None]
